FAERS Safety Report 23443734 (Version 1)
Quarter: 2024Q1

REPORT INFORMATION
  Report Type: Spontaneous
  Country: US (occurrence: US)
  Receive Date: 20240125
  Receipt Date: 20240125
  Transmission Date: 20240410
  Serious: Yes (Disabling, Other)
  Sender: FDA-Public Use
  Company Number: US-009507513-2401USA014146

PATIENT
  Age: 64 Year
  Sex: Male

DRUGS (1)
  1. TICE BCG [Suspect]
     Active Substance: BACILLUS CALMETTE-GUERIN SUBSTRAIN TICE LIVE ANTIGEN
     Indication: Bladder transitional cell carcinoma
     Dosage: UNK (INTERSPACED FIVE INSTILLATIONS BETWEEN TWO TRANSURETHRAL RESECTIONS)
     Route: 043

REACTIONS (1)
  - Bone tuberculosis [Recovering/Resolving]
